FAERS Safety Report 7186637-8 (Version None)
Quarter: 2010Q4

REPORT INFORMATION
  Report Type: 
  Country: None (occurrence: None)
  Receive Date: 20101222
  Receipt Date: 20100624
  Transmission Date: 20110411
  Serious: No
  Sender: FDA-Public Use
  Company Number: US-AMGEN-KDL420424

PATIENT

DRUGS (5)
  1. ENBREL [Suspect]
     Indication: PRODUCT USED FOR UNKNOWN INDICATION
     Dosage: 50 MG, QWK
     Route: 058
  2. DULOXETIME HYDROCHLORIDE [Concomitant]
     Dosage: 30 MG, UNK
  3. METHOTREXATE [Concomitant]
     Dosage: 2.5 MG, UNK
  4. TRAMADOL HYDROCHLORIDE [Concomitant]
     Dosage: 50 MG, UNK
  5. ERGOCALCIFEROL [Concomitant]
     Dosage: 1000 IU, UNK

REACTIONS (1)
  - ABDOMINAL PAIN [None]
